FAERS Safety Report 6449544-1 (Version None)
Quarter: 2009Q4

REPORT INFORMATION
  Report Type: 
  Country: None (occurrence: None)
  Receive Date: 20091120
  Receipt Date: 20091112
  Transmission Date: 20100525
  Serious: Yes (Other)
  Sender: FDA-Public Use
  Company Number: CH-ABBOTT-09P-151-0608258-00

PATIENT
  Age: 25 Year
  Sex: Male

DRUGS (3)
  1. ADALIMUMAB [Suspect]
     Indication: CROHN'S DISEASE
     Route: 050
  2. AZATHIOPRINE [Concomitant]
     Indication: CROHN'S DISEASE
  3. PREDNISOLONE [Concomitant]
     Indication: CROHN'S DISEASE
     Dosage: BETWEEN 10-60 MG

REACTIONS (1)
  - CARDIOMYOPATHY [None]
